FAERS Safety Report 4814290-4 (Version None)
Quarter: 2005Q4

REPORT INFORMATION
  Report Type: 
  Country: None (occurrence: None)
  Receive Date: 20051028
  Receipt Date: 20050729
  Transmission Date: 20060501
  Serious: No
  Sender: FDA-Public Use
  Company Number: US-GLAXOSMITHKLINE-A0568292A

PATIENT
  Sex: Female

DRUGS (2)
  1. ADVAIR DISKUS 100/50 [Suspect]
     Indication: ASTHMA
     Dosage: 250MG TWICE PER DAY
     Route: 055
     Dates: start: 20050501, end: 20050701
  2. FLONASE [Concomitant]

REACTIONS (5)
  - BRONCHITIS [None]
  - DRUG INEFFECTIVE [None]
  - DYSPHONIA [None]
  - PHARYNGITIS [None]
  - UPPER RESPIRATORY TRACT CONGESTION [None]
